FAERS Safety Report 9324425 (Version 1)
Quarter: 2013Q2

REPORT INFORMATION
  Report Type: Report from Study
  Country: US (occurrence: US)
  Receive Date: 20130603
  Receipt Date: 20130603
  Transmission Date: 20140414
  Serious: Yes (Hospitalization)
  Sender: FDA-Public Use
  Company Number: US-009507513-1305USA005544

PATIENT
  Age: 64 Year
  Sex: Female
  Weight: 94.6 kg

DRUGS (4)
  1. VORINOSTAT [Suspect]
     Indication: NEOPLASM
     Dosage: 1200 MG, ON DAYS 1-3, CYCLE 0 (CYCLE = 14 DAYS)
     Route: 048
     Dates: start: 20121224, end: 20121226
  2. VORINOSTAT [Suspect]
     Dosage: 400 MG, ON DAYS 8-10, CYCLE 0 (CYCLE = 14 DAYS)
     Route: 048
     Dates: start: 20121231, end: 20130102
  3. VORINOSTAT [Suspect]
     Dosage: 1200 MG ON DAYS 1-3, CYCLE 6 (CYCLE = 21 DAYS)
     Route: 048
     Dates: start: 20130422, end: 20130424
  4. PACLITAXEL [Suspect]
     Indication: NEOPLASM
     Dosage: 175 MG/M2 OVER 3 HRS ON DAY 3, CYCLE 6 (CYCLE 21 = 21 DAYS)
     Route: 042
     Dates: start: 20130424, end: 20130424

REACTIONS (2)
  - Small intestinal obstruction [Not Recovered/Not Resolved]
  - Ileal perforation [Not Recovered/Not Resolved]
